FAERS Safety Report 10066835 (Version 1)
Quarter: 2014Q2

REPORT INFORMATION
  Report Type: Spontaneous
  Country: AT (occurrence: AT)
  Receive Date: 20140408
  Receipt Date: 20140408
  Transmission Date: 20141212
  Serious: Yes (Other)
  Sender: FDA-Public Use
  Company Number: AT-MYLANLABS-2014S1007403

PATIENT
  Age: 64 Year
  Sex: Male

DRUGS (8)
  1. CIPROFLOXACIN [Suspect]
     Indication: PNEUMONIA
     Dosage: 400 MG Q12H INCREASED TO Q8H ON DAY 16
     Route: 065
  2. CIPROFLOXACIN [Suspect]
     Indication: PNEUMONIA
     Dosage: 400 MG Q8H
     Route: 065
  3. PIPERACILLIN W/TAZOBACTAM          /01606301/ [Concomitant]
     Indication: EVIDENCE BASED TREATMENT
     Dosage: 4/0.5 G Q8H INCREASED TO Q6H ON DAY 4
     Route: 065
  4. PIPERACILLIN W/TAZOBACTAM          /01606301/ [Concomitant]
     Indication: EVIDENCE BASED TREATMENT
     Dosage: 4/0.5 G Q6H
     Route: 065
  5. TIGECYCLINE [Concomitant]
     Indication: INFECTION
     Dosage: 100 MG Q12H
     Route: 065
  6. TIGECYCLINE [Concomitant]
     Indication: INFECTION
     Dosage: 150MG LOADING DOSE
     Route: 065
  7. FOSFOMYCIN [Concomitant]
     Indication: PNEUMONIA
     Dosage: 4 G Q8H
     Route: 065
  8. ATORVASTATIN [Concomitant]
     Dosage: 80MG
     Route: 065

REACTIONS (2)
  - Rhabdomyolysis [Recovered/Resolved]
  - Renal impairment [Recovered/Resolved]
